FAERS Safety Report 7216985-4 (Version None)
Quarter: 2011Q1

REPORT INFORMATION
  Report Type: 
  Country: None (occurrence: None)
  Receive Date: 20110110
  Receipt Date: 20101231
  Transmission Date: 20110831
  Serious: Yes (Death)
  Sender: FDA-Public Use
  Company Number: US-PFIZER INC-2011000593

PATIENT
  Age: 57 Year
  Sex: Male

DRUGS (7)
  1. COLCHICINE [Suspect]
  2. FENOFIBRATE [Suspect]
  3. ETHANOL [Suspect]
  4. ACETAMINOPHEN [Suspect]
     Dosage: UNK
  5. NAPROXEN [Suspect]
  6. CHOLESTYRAMINE RESIN [Suspect]
  7. IBUPROFEN [Suspect]

REACTIONS (1)
  - COMPLETED SUICIDE [None]
